FAERS Safety Report 7634328-9 (Version None)
Quarter: 2011Q3

REPORT INFORMATION
  Report Type: 
  Country: None (occurrence: None)
  Receive Date: 20110725
  Receipt Date: 20100908
  Transmission Date: 20111222
  Serious: No
  Sender: FDA-Public Use
  Company Number: US-MYLANLABS-2010S1016660

PATIENT
  Age: 75 Year
  Sex: Male

DRUGS (7)
  1. TOPROL-XL [Concomitant]
  2. PROPAFENONE HCL [Concomitant]
  3. ALPRAZOLAM [Suspect]
     Indication: PANIC ATTACK
     Route: 048
     Dates: start: 20100801, end: 20100908
  4. BUSPIRONE HCL [Suspect]
     Indication: PANIC ATTACK
     Route: 048
     Dates: start: 20100807
  5. LOTREL [Concomitant]
     Dosage: YEARS  10MG/20MG
  6. WARFARIN [Concomitant]
  7. BUSPIRONE HCL [Suspect]
     Route: 048

REACTIONS (5)
  - DIZZINESS [None]
  - FATIGUE [None]
  - INSOMNIA [None]
  - INFLUENZA LIKE ILLNESS [None]
  - DRUG HYPERSENSITIVITY [None]
